FAERS Safety Report 4580883-5 (Version None)
Quarter: 2005Q1

REPORT INFORMATION
  Report Type: 
  Country: None (occurrence: None)
  Receive Date: 20050214
  Receipt Date: 20040622
  Transmission Date: 20050727
  Serious: No
  Sender: FDA-Public Use
  Company Number: US-GLAXOSMITHKLINE-A0515574A

PATIENT
  Age: 29 Year
  Sex: Female

DRUGS (3)
  1. LAMICTAL [Suspect]
     Indication: BIPOLAR DISORDER
     Dosage: 12.5MG PER DAY
     Route: 048
     Dates: start: 20040610, end: 20040615
  2. NEURONTIN [Concomitant]
  3. FLEXERIL [Concomitant]

REACTIONS (4)
  - DEPRESSION [None]
  - DIZZINESS [None]
  - MOOD SWINGS [None]
  - URTICARIA [None]
